FAERS Safety Report 6849531-5 (Version None)
Quarter: 2010Q3

REPORT INFORMATION
  Report Type: 
  Country: None (occurrence: None)
  Receive Date: 20100716
  Receipt Date: 20071128
  Transmission Date: 20110219
  Serious: No
  Sender: FDA-Public Use
  Company Number: US-PFIZER INC-2007082339

PATIENT
  Age: 39 Year
  Sex: Male

DRUGS (3)
  1. CHANTIX [Suspect]
     Dates: start: 20070529
  2. OXYCONTIN [Concomitant]
  3. ALL OTHER THERAPEUTIC PRODUCTS [Concomitant]

REACTIONS (1)
  - FLUSHING [None]
